FAERS Safety Report 7922096 (Version 4)
Quarter: 2012Q4

REPORT INFORMATION
  Report Type: 
  Country: US (occurrence: US)
  Receive Date: 20110429
  Receipt Date: 20121002
  Transmission Date: 20130627
  Serious: No
  Sender: FDA-Public Use
  Company Number: US-ASTRAZENECA-2010SE61438

PATIENT
  Age: 61 Year
  Sex: Female

DRUGS (1)
  1. NEXIUM [Suspect]
     Route: 048

REACTIONS (8)
  - Gastrooesophageal reflux disease [Unknown]
  - Road traffic accident [Unknown]
  - Mobility decreased [Unknown]
  - Asthma [Unknown]
  - Asthma [Unknown]
  - Fatigue [Unknown]
  - Drug dose omission [Unknown]
  - Therapeutic response unexpected [Unknown]
